FAERS Safety Report 12247338 (Version 2)
Quarter: 2016Q2

REPORT INFORMATION
  Report Type: Spontaneous
  Country: FR (occurrence: FR)
  Receive Date: 20160407
  Receipt Date: 20160414
  Transmission Date: 20160815
  Serious: Yes (Hospitalization)
  Sender: FDA-Public Use
  Company Number: FR-PFIZER INC-2016187746

PATIENT
  Age: 71 Year
  Sex: Female

DRUGS (11)
  1. TAHOR [Suspect]
     Active Substance: ATORVASTATIN CALCIUM
     Dosage: 10 MG, 1X/DAY
     Dates: start: 20160215, end: 20160223
  2. ORACILLINE /00001801/ [Suspect]
     Active Substance: PENICILLIN V
     Dosage: 1000000 IU, 2X/DAY
     Route: 048
     Dates: start: 20160211, end: 20160227
  3. STILNOX [Suspect]
     Active Substance: ZOLPIDEM TARTRATE
     Dosage: 10 MG, 1X/DAY
     Route: 048
     Dates: start: 20160212, end: 20160225
  4. BISOPROLOL [Concomitant]
     Active Substance: BISOPROLOL
  5. IMUREL /00001501/ [Suspect]
     Active Substance: AZATHIOPRINE SODIUM
     Dosage: 150 MG, 1X/DAY
     Route: 048
     Dates: start: 20160209, end: 20160225
  6. EUPANTOL [Concomitant]
     Active Substance: PANTOPRAZOLE SODIUM
     Dosage: UNK
     Dates: start: 20160222, end: 20160225
  7. ROVALCYTE [Suspect]
     Active Substance: VALGANCICLOVIR HYDROCHLORIDE
     Dosage: 450 MG TWICE WEEKLY
     Route: 048
     Dates: start: 20160223, end: 20160229
  8. NEORAL [Concomitant]
     Active Substance: CYCLOSPORINE
  9. ROVALCYTE [Suspect]
     Active Substance: VALGANCICLOVIR HYDROCHLORIDE
     Dosage: 450 MG, ALTERNATE DAY
     Route: 048
     Dates: start: 20160211, end: 20160223
  10. BACTRIM ADULTES [Suspect]
     Active Substance: SULFAMETHOXAZOLE\TRIMETHOPRIM
     Dosage: 1 DF, 1X/DAY
     Route: 048
     Dates: start: 20160211, end: 20160223
  11. AMLOR [Concomitant]
     Active Substance: AMLODIPINE BESYLATE

REACTIONS (1)
  - Mixed liver injury [Recovered/Resolved]

NARRATIVE: CASE EVENT DATE: 20160222
